FAERS Safety Report 26158240 (Version 2)
Quarter: 2025Q4

REPORT INFORMATION
  Report Type: Spontaneous
  Country: CO (occurrence: CO)
  Receive Date: 20251215
  Receipt Date: 20251230
  Transmission Date: 20260118
  Serious: Yes (Other)
  Sender: BRISTOL-MYERS SQUIBB COMPANY
  Company Number: CO-IPSEN Group, Research and Development-2025-30212

PATIENT
  Age: 7 Decade
  Sex: Male

DRUGS (2)
  1. NIVOLUMAB [Suspect]
     Active Substance: NIVOLUMAB
     Indication: Renal cancer metastatic
     Dosage: UNK
  2. CABOMETYX [Suspect]
     Active Substance: CABOZANTINIB S-MALATE
     Indication: Renal cancer metastatic
     Dosage: UNK

REACTIONS (2)
  - Ulcerative keratitis [Not Recovered/Not Resolved]
  - Scleromalacia [Not Recovered/Not Resolved]

NARRATIVE: CASE EVENT DATE: 20250901
